FAERS Safety Report 24036053 (Version 1)
Quarter: 2024Q3

REPORT INFORMATION
  Report Type: Spontaneous
  Country: GB (occurrence: GB)
  Receive Date: 20240701
  Receipt Date: 20240701
  Transmission Date: 20241016
  Serious: Yes (Other)
  Sender: JOHNSON AND JOHNSON
  Company Number: GB-Bristol Laboratories Ltd-BLL202406-000040

PATIENT
  Sex: Male
  Weight: 73 kg

DRUGS (10)
  1. HALOPERIDOL DECANOATE [Suspect]
     Active Substance: HALOPERIDOL DECANOATE
     Indication: Product used for unknown indication
     Route: 065
  2. FLUOXETINE [Suspect]
     Active Substance: FLUOXETINE HYDROCHLORIDE
     Indication: Obsessive-compulsive disorder
     Dosage: 2 DOSES OF 20 MG (DOSE- 40 MG A DAY)
     Route: 065
     Dates: start: 20120701
  3. RISPERIDONE [Suspect]
     Active Substance: RISPERIDONE
     Indication: Product used for unknown indication
     Dosage: RISPERIDONE 1MG ORODISPERSIBLE TABLETS (3 TABLETS PER DAY).
     Route: 065
  4. ZYPREXA [Suspect]
     Active Substance: OLANZAPINE
     Indication: Product used for unknown indication
     Route: 065
  5. ZOPICLONE [Concomitant]
     Active Substance: ZOPICLONE
  6. PALIPERIDONE [Concomitant]
     Active Substance: PALIPERIDONE
  7. TRANYLCYPROMINE [Concomitant]
     Active Substance: TRANYLCYPROMINE
  8. FLUPENTIXOL DECANOATE [Concomitant]
     Active Substance: FLUPENTIXOL DECANOATE
  9. DIAZEPAM [Concomitant]
     Active Substance: DIAZEPAM
  10. RISPERIDONE [Concomitant]
     Active Substance: RISPERIDONE
     Dosage: RISPERIDONE NORMAL TABLETS 3MG ONCE A DAY

REACTIONS (33)
  - Akinesia [Not Recovered/Not Resolved]
  - Illusion [Recovered/Resolved]
  - Tardive dyskinesia [Recovered/Resolved]
  - Conversion disorder [Unknown]
  - Eye movement disorder [Recovered/Resolved]
  - Muscle spasms [Not Recovered/Not Resolved]
  - Jaw clicking [Recovered/Resolved]
  - Muscle tightness [Unknown]
  - Psychiatric symptom [Recovered/Resolved]
  - General physical health deterioration [Recovered/Resolved]
  - Dystonia [Not Recovered/Not Resolved]
  - Anaphylactic reaction [Recovered/Resolved]
  - Hallucination [Recovered/Resolved]
  - Seizure [Recovered/Resolved]
  - Adverse drug reaction [Unknown]
  - Heart rate increased [Recovered/Resolved]
  - Pollakiuria [Recovered/Resolved]
  - Tremor [Recovered/Resolved]
  - Yawning [Recovered/Resolved]
  - Hyperhidrosis [Recovered/Resolved]
  - Aggression [Recovered/Resolved]
  - Agitation [Recovered/Resolved]
  - Panic attack [Recovered/Resolved]
  - Balance disorder [Recovered/Resolved]
  - Muscle twitching [Not Recovered/Not Resolved]
  - Alopecia [Unknown]
  - Dyspnoea [Recovered/Resolved]
  - Dyskinesia [Recovered/Resolved]
  - Vision blurred [Recovered/Resolved]
  - Bruxism [Recovered/Resolved]
  - Myalgia [Not Recovered/Not Resolved]
  - Treatment noncompliance [Unknown]
  - Labelled drug-drug interaction issue [Recovered/Resolved]

NARRATIVE: CASE EVENT DATE: 20140101
